FAERS Safety Report 8119063-5 (Version None)
Quarter: 2012Q1

REPORT INFORMATION
  Report Type: 
  Country: None (occurrence: None)
  Receive Date: 20120207
  Receipt Date: 20120130
  Transmission Date: 20120608
  Serious: No
  Sender: FDA-Public Use
  Company Number: US-B.I. PHARMACEUTICALS,INC./RIDGEFIELD-2012-BP-01827BP

PATIENT
  Sex: Female

DRUGS (4)
  1. MIRAPEX [Suspect]
     Dosage: 0.5 MG
     Route: 048
     Dates: start: 20120109, end: 20120109
  2. MIRAPEX [Suspect]
     Indication: RESTLESS LEGS SYNDROME
     Dosage: 1.5 MG
     Route: 048
     Dates: start: 20120108, end: 20120108
  3. DEPAKOTE [Suspect]
     Indication: RESTLESS LEGS SYNDROME
     Dosage: 500 MG
     Route: 048
  4. PERCOCET [Concomitant]
     Indication: DYSMENORRHOEA
     Route: 048
     Dates: start: 20100101, end: 20120108

REACTIONS (3)
  - PYREXIA [None]
  - VOMITING [None]
  - INCORRECT DOSE ADMINISTERED [None]
